FAERS Safety Report 25064948 (Version 4)
Quarter: 2025Q3

REPORT INFORMATION
  Report Type: Spontaneous
  Country: SG (occurrence: SG)
  Receive Date: 20250311
  Receipt Date: 20250916
  Transmission Date: 20251020
  Serious: Yes (Other)
  Sender: PFIZER
  Company Number: SG-MLMSERVICE-20250228-PI430483-00218-3

PATIENT
  Age: 70 Year
  Sex: Female
  Weight: 53 kg

DRUGS (1)
  1. METHOTREXATE SODIUM [Suspect]
     Active Substance: METHOTREXATE SODIUM
     Indication: Psoriasis
     Dosage: 7.5 MG, WEEKLY (FOR 2 WEEKS)

REACTIONS (6)
  - Skin erosion [Recovered/Resolved]
  - Acute kidney injury [Recovered/Resolved]
  - Bone marrow failure [Recovered/Resolved]
  - Pancytopenia [Recovered/Resolved]
  - Mouth ulceration [Recovered/Resolved]
  - Skin ulcer [Recovered/Resolved]
